FAERS Safety Report 19978710 (Version 1)
Quarter: 2021Q4

REPORT INFORMATION
  Report Type: Spontaneous
  Country: US (occurrence: US)
  Receive Date: 20211021
  Receipt Date: 20211021
  Transmission Date: 20220303
  Serious: No
  Sender: FDA-Public Use
  Company Number: None

PATIENT
  Age: 9 Month
  Sex: Male
  Weight: 8.1 kg

DRUGS (6)
  1. MIRALAX [Suspect]
     Active Substance: POLYETHYLENE GLYCOL 3350
     Indication: Constipation
     Dates: start: 20200915, end: 20201010
  2. MAGNESIUM CITRATE [Concomitant]
     Active Substance: MAGNESIUM CITRATE
  3. BIOCIDIN [Concomitant]
  4. GRAPEFRUIT SEED EXTRACT [Concomitant]
     Active Substance: GRAPEFRUIT SEED EXTRACT
  5. ZINC [Concomitant]
     Active Substance: ZINC
  6. PROBIOTICS NOS [Concomitant]
     Active Substance: PROBIOTICS NOS

REACTIONS (3)
  - Off label use [None]
  - Abnormal behaviour [None]
  - Mood altered [None]

NARRATIVE: CASE EVENT DATE: 20201002
